FAERS Safety Report 5931348-7 (Version None)
Quarter: 2008Q4

REPORT INFORMATION
  Report Type: 
  Country: None (occurrence: None)
  Receive Date: 20081024
  Receipt Date: 20081024
  Transmission Date: 20090506
  Serious: Yes (Death)
  Sender: FDA-Public Use
  Company Number: None

PATIENT
  Age: 80 Year
  Sex: Female
  Weight: 90.7194 kg

DRUGS (1)
  1. DEMEROL [Suspect]
     Indication: ABDOMINAL PAIN
     Dosage: DEMEROL 50 MG.  IV BOLUS
     Route: 040

REACTIONS (1)
  - RESPIRATORY ARREST [None]
